FAERS Safety Report 5289850-X (Version None)
Quarter: 2007Q2

REPORT INFORMATION
  Report Type: 
  Country: None (occurrence: None)
  Receive Date: 20070406
  Receipt Date: 20070329
  Transmission Date: 20071010
  Serious: Yes (Life-Threatening, Hospitalization)
  Sender: FDA-Public Use
  Company Number: GB-SANOFI-SYNTHELABO-A01200702322

PATIENT
  Age: 34 Year
  Sex: Female

DRUGS (2)
  1. FLUOROURACIL [Suspect]
     Route: 041
     Dates: start: 20070205, end: 20070207
  2. OXALIPLATIN [Suspect]
     Route: 040
     Dates: start: 20070205, end: 20070205

REACTIONS (6)
  - ARTERIOSPASM CORONARY [None]
  - ATRIAL FIBRILLATION [None]
  - CHEST PAIN [None]
  - ELECTROCARDIOGRAM ST SEGMENT ELEVATION [None]
  - HYPOTENSION [None]
  - VENTRICULAR HYPOKINESIA [None]
